FAERS Safety Report 6621559-X (Version None)
Quarter: 2010Q1

REPORT INFORMATION
  Report Type: 
  Country: None (occurrence: None)
  Receive Date: 20100223
  Receipt Date: 20100112
  Transmission Date: 20100710
  Serious: Yes (Other)
  Sender: FDA-Public Use
  Company Number: 005025

PATIENT
  Sex: 0

DRUGS (1)
  1. CIMZIA [Suspect]
     Indication: DRUG USE FOR UNKNOWN INDICATION
     Dosage: (400MG SUBCUTANEOUS)
     Route: 058

REACTIONS (1)
  - TENDERNESS [None]
